FAERS Safety Report 18381231 (Version 1)
Quarter: 2020Q4

REPORT INFORMATION
  Report Type: Report from Study
  Country: JP (occurrence: JP)
  Receive Date: 20201014
  Receipt Date: 20201014
  Transmission Date: 20210114
  Serious: Yes (Death, Other)
  Sender: FDA-Public Use
  Company Number: JP-VISTAPHARM, INC.-VER202010-001724

PATIENT
  Age: 73 Year
  Sex: Male

DRUGS (1)
  1. PREDNISOLONE. [Suspect]
     Active Substance: PREDNISOLONE
     Indication: RHEUMATOID ARTHRITIS
     Dosage: 15 MG
     Route: 065

REACTIONS (2)
  - Pulmonary nocardiosis [Fatal]
  - Respiratory failure [Fatal]
